FAERS Safety Report 22140787 (Version 1)
Quarter: 2023Q1

REPORT INFORMATION
  Report Type: Spontaneous
  Country: US (occurrence: None)
  Receive Date: 20230324
  Receipt Date: 20230324
  Transmission Date: 20230418
  Serious: Yes (Other)
  Sender: FDA-Public Use
  Company Number: None

PATIENT
  Age: 55 Year
  Sex: Male

DRUGS (1)
  1. ARNICA (HOMEOPATHIC) [Suspect]
     Active Substance: HOMEOPATHICS
     Indication: Eczema
     Dates: start: 202301, end: 20230125

REACTIONS (1)
  - Eczema [None]

NARRATIVE: CASE EVENT DATE: 20230117
